FAERS Safety Report 7993603-9 (Version None)
Quarter: 2011Q4

REPORT INFORMATION
  Report Type: 
  Country: None (occurrence: None)
  Receive Date: 20111219
  Receipt Date: 20111214
  Transmission Date: 20120403
  Serious: Yes (Hospitalization)
  Sender: FDA-Public Use
  Company Number: US-MERCK-1110USA03838

PATIENT
  Age: 70 Year
  Sex: Male

DRUGS (4)
  1. CENTRUM SILVER [Concomitant]
     Route: 065
     Dates: start: 20000101, end: 20110101
  2. FOSAMAX [Suspect]
     Route: 048
     Dates: start: 20080201, end: 20101001
  3. FOSAMAX [Suspect]
     Indication: OSTEOPOROSIS
     Route: 048
     Dates: start: 20020101, end: 20080201
  4. FOSAMAX [Suspect]
     Indication: JOINT INSTABILITY
     Route: 048
     Dates: start: 20020101, end: 20080201

REACTIONS (4)
  - CARDIAC DISORDER [None]
  - HYPERTENSION [None]
  - PNEUMONIA [None]
  - FEMUR FRACTURE [None]
